FAERS Safety Report 8468730 (Version 6)
Quarter: 2012Q4

REPORT INFORMATION
  Report Type: 
  Country: US (occurrence: US)
  Receive Date: 20120320
  Receipt Date: 20121024
  Transmission Date: 20130627
  Serious: Yes (Hospitalization, Other)
  Sender: FDA-Public Use
  Company Number: US-009507513-1203USA01845

PATIENT

DRUGS (1)
  1. FOSAMAX [Suspect]
     Indication: OSTEOPOROSIS
     Dosage: 70 mg, qw
     Route: 048
     Dates: start: 200507, end: 201010

REACTIONS (53)
  - Femur fracture [Unknown]
  - Fracture delayed union [Unknown]
  - Device failure [Unknown]
  - Arthropathy [Unknown]
  - Intramedullary rod insertion [Unknown]
  - Open reduction of fracture [Unknown]
  - Internal fixation of fracture [Unknown]
  - Stress fracture [Unknown]
  - Haemorrhoid operation [Unknown]
  - Pancreatitis [Unknown]
  - Joint arthroplasty [Unknown]
  - Peripheral nerve operation [Unknown]
  - Transfusion [Unknown]
  - Adverse event [Unknown]
  - Vascular calcification [Unknown]
  - Exostosis [Unknown]
  - Ligament sprain [Unknown]
  - Patellofemoral pain syndrome [Unknown]
  - Meniscus injury [Unknown]
  - Meniscus removal [Unknown]
  - Arthritis [Unknown]
  - Type 2 diabetes mellitus [Unknown]
  - Arthroscopy [Unknown]
  - Hypertension [Unknown]
  - Cystopexy [Unknown]
  - Hypercholesterolaemia [Unknown]
  - Anaemia postoperative [Unknown]
  - Scoliosis [Unknown]
  - Exostosis [Unknown]
  - Psoriatic arthropathy [Unknown]
  - Arthropathy [Unknown]
  - Cough [Unknown]
  - Heart rate irregular [Unknown]
  - Palpitations [Unknown]
  - Increased tendency to bruise [Unknown]
  - Visual impairment [Unknown]
  - Seborrhoeic keratosis [Unknown]
  - Actinic keratosis [Unknown]
  - Irritable bowel syndrome [Unknown]
  - Neuralgia [Unknown]
  - Sciatica [Unknown]
  - Hypokalaemia [Unknown]
  - Pleurisy [Unknown]
  - Rheumatoid arthritis [Unknown]
  - Neuritis [Unknown]
  - Adrenal adenoma [Unknown]
  - Bundle branch block right [Unknown]
  - Back pain [Not Recovered/Not Resolved]
  - Headache [Unknown]
  - Constipation [Unknown]
  - Diarrhoea [Unknown]
  - Gastrooesophageal reflux disease [Unknown]
  - Pain in extremity [Not Recovered/Not Resolved]
